FAERS Safety Report 9787707 (Version 1)
Quarter: 2013Q4

REPORT INFORMATION
  Report Type: Spontaneous
  Country: CH (occurrence: CH)
  Receive Date: 20131230
  Receipt Date: 20131230
  Transmission Date: 20140711
  Serious: Yes (Hospitalization)
  Sender: FDA-Public Use
  Company Number: CH-JNJFOC-20131215502

PATIENT
  Age: 84 Year
  Sex: Female

DRUGS (15)
  1. XARELTO [Suspect]
     Indication: CEREBROVASCULAR ACCIDENT PROPHYLAXIS
     Route: 048
     Dates: start: 201304
  2. XARELTO [Suspect]
     Indication: ATRIAL FIBRILLATION
     Route: 048
     Dates: start: 201304
  3. SORTIS / ATORVASTATIN [Suspect]
     Indication: PRODUCT USED FOR UNKNOWN INDICATION
     Route: 065
     Dates: start: 201303
  4. LASIX [Suspect]
     Indication: ESSENTIAL HYPERTENSION
     Route: 048
     Dates: start: 201303, end: 201304
  5. TOREM [Suspect]
     Indication: ESSENTIAL HYPERTENSION
     Route: 048
     Dates: start: 201304
  6. PERINDOPRIL [Suspect]
     Indication: ESSENTIAL HYPERTENSION
     Route: 048
     Dates: start: 201304
  7. FENTANYL [Concomitant]
     Route: 065
  8. CALCIMAGON [Concomitant]
     Route: 065
  9. ALLOPUR [Concomitant]
     Route: 065
  10. PREDNISON [Concomitant]
     Route: 065
  11. MAGNESIUM [Concomitant]
     Route: 065
     Dates: start: 201304
  12. KCL [Concomitant]
     Route: 065
     Dates: start: 201304
  13. MOVICOL [Concomitant]
     Route: 065
  14. BILOL [Concomitant]
     Route: 065
     Dates: start: 201304
  15. ZALDIAR [Concomitant]
     Route: 065
     Dates: start: 201304, end: 201311

REACTIONS (2)
  - Cerebral infarction [Unknown]
  - Thrombocytopenia [Unknown]
